FAERS Safety Report 6195036-7 (Version None)
Quarter: 2009Q2

REPORT INFORMATION
  Report Type: 
  Country: None (occurrence: None)
  Receive Date: 20090519
  Receipt Date: 20090512
  Transmission Date: 20091009
  Serious: Yes (Other)
  Sender: FDA-Public Use
  Company Number: B0574572A

PATIENT
  Age: 38 Year
  Sex: Female

DRUGS (3)
  1. AVAMYS [Suspect]
     Dosage: 4SPR PER DAY
     Route: 045
  2. ASPIRIN [Concomitant]
     Indication: DRUG USE FOR UNKNOWN INDICATION
     Route: 065
  3. UNKNOWN DRUG [Concomitant]
     Route: 065

REACTIONS (2)
  - CIRCULATORY COLLAPSE [None]
  - EPISTAXIS [None]
